FAERS Safety Report 8834813 (Version 2)
Quarter: 2014Q1

REPORT INFORMATION
  Report Type: Spontaneous
  Country: US (occurrence: US)
  Receive Date: 20121010
  Receipt Date: 20140107
  Transmission Date: 20141002
  Serious: Yes (Hospitalization)
  Sender: FDA-Public Use
  Company Number: US-GLAXOSMITHKLINE-A0996857A

PATIENT
  Age: 54 Year
  Sex: Female
  Weight: 111 kg

DRUGS (1)
  1. FLOLAN [Suspect]
     Indication: PRODUCT USED FOR UNKNOWN INDICATION
     Dosage: 28.5NGKM CONTINUOUS
     Route: 042
     Dates: start: 20070112

REACTIONS (3)
  - Pneumonia [Unknown]
  - Chest pain [Unknown]
  - Haematoma [Unknown]
